FAERS Safety Report 26097061 (Version 1)
Quarter: 2025Q4

REPORT INFORMATION
  Report Type: Spontaneous
  Country: JP (occurrence: JP)
  Receive Date: 20251127
  Receipt Date: 20251127
  Transmission Date: 20260117
  Serious: Yes (Other)
  Sender: MERCK SHARP & DOHME LLC
  Company Number: JP-009507513-2352349

PATIENT
  Age: 77 Year
  Sex: Female

DRUGS (3)
  1. KEYTRUDA [Suspect]
     Active Substance: PEMBROLIZUMAB
     Indication: Bile duct cancer
     Dosage: 8 CYCLES
     Route: 041
  2. GEMCITABINE HYDROCHLORIDE [Suspect]
     Active Substance: GEMCITABINE HYDROCHLORIDE
  3. CISPLATIN [Suspect]
     Active Substance: CISPLATIN

REACTIONS (2)
  - Inappropriate antidiuretic hormone secretion [Unknown]
  - Anaemia [Unknown]
